FAERS Safety Report 19129951 (Version 1)
Quarter: 2021Q2

REPORT INFORMATION
  Report Type: Spontaneous
  Country: US (occurrence: US)
  Receive Date: 20210413
  Receipt Date: 20210413
  Transmission Date: 20210717
  Serious: No
  Sender: FDA-Public Use
  Company Number: US-SA-2021SA120193

PATIENT
  Sex: Male

DRUGS (2)
  1. ASPIRIN EXTRA [Concomitant]
  2. DUPIXENT [Suspect]
     Active Substance: DUPILUMAB
     Indication: SINUSITIS
     Dosage: 300 MG, QOW
     Route: 058
     Dates: start: 202012

REACTIONS (1)
  - Rhinorrhoea [Not Recovered/Not Resolved]
